FAERS Safety Report 24451142 (Version 1)
Quarter: 2024Q4

REPORT INFORMATION
  Report Type: Spontaneous
  Country: US (occurrence: US)
  Receive Date: 20241017
  Receipt Date: 20241017
  Transmission Date: 20250115
  Serious: No
  Sender: SANDOZ
  Company Number: US-SANDOZ-SDZ2024US047195

PATIENT

DRUGS (2)
  1. POLYMYXIN B SULFATE\TRIMETHOPRIM [Suspect]
     Active Substance: POLYMYXIN B SULFATE\TRIMETHOPRIM
     Indication: Conjunctivitis
     Dosage: UNK
     Route: 065
  2. SULFACETAMIDE [Concomitant]
     Active Substance: SULFACETAMIDE
     Indication: Product used for unknown indication
     Route: 065

REACTIONS (7)
  - Lacrimation increased [Unknown]
  - Eyelid sensory disorder [Unknown]
  - Headache [Unknown]
  - Eye inflammation [Recovered/Resolved]
  - Ocular hyperaemia [Recovered/Resolved]
  - Eye pain [Unknown]
  - Product quality issue [Unknown]
